FAERS Safety Report 11342215 (Version 2)
Quarter: 2015Q3

REPORT INFORMATION
  Report Type: Report from Study
  Country: US (occurrence: US)
  Receive Date: 20150805
  Receipt Date: 20150922
  Transmission Date: 20151125
  Serious: Yes (Other)
  Sender: FDA-Public Use
  Company Number: US-GILEAD-2015-0163754

PATIENT
  Age: 52 Year
  Sex: Female

DRUGS (6)
  1. ISOSORBIDE MONONITRATE. [Concomitant]
     Active Substance: ISOSORBIDE MONONITRATE
     Indication: ANGINA PECTORIS
     Dosage: 30 MG, BID
     Route: 048
     Dates: start: 2000
  2. XANAX [Concomitant]
     Active Substance: ALPRAZOLAM
     Indication: ANGINA PECTORIS
     Dosage: UNK
     Route: 048
     Dates: start: 2000
  3. SOFOSBUVIR [Suspect]
     Active Substance: SOFOSBUVIR
     Indication: CHRONIC HEPATITIS C
     Dosage: 400 MG, UNK
     Route: 048
     Dates: start: 20150709
  4. DILTIAZEM [Concomitant]
     Active Substance: DILTIAZEM
     Indication: ANGINA PECTORIS
     Dosage: 90 MG, UNK
     Route: 048
     Dates: start: 2000
  5. RIBAVIRIN. [Concomitant]
     Active Substance: RIBAVIRIN
     Indication: CHRONIC HEPATITIS C
     Dosage: 1000 MG, QD (400 MG AM AND 600 MG PM)
     Route: 048
     Dates: start: 20150709
  6. CARVEDILOL. [Concomitant]
     Active Substance: CARVEDILOL
     Indication: ANGINA PECTORIS
     Dosage: 12.5 MG, BID
     Route: 048
     Dates: start: 2000

REACTIONS (10)
  - Pain in extremity [Unknown]
  - Wheezing [Unknown]
  - Gastrooesophageal reflux disease [Unknown]
  - Dyspepsia [Unknown]
  - Dyspnoea [Unknown]
  - Contusion [Unknown]
  - Dysuria [Unknown]
  - Haemoglobin decreased [Unknown]
  - Pneumonia [Unknown]
  - Chest pain [Unknown]

NARRATIVE: CASE EVENT DATE: 201507
